FAERS Safety Report 5607847-4 (Version None)
Quarter: 2008Q1

REPORT INFORMATION
  Report Type: 
  Country: None (occurrence: None)
  Receive Date: 20080130
  Receipt Date: 20080123
  Transmission Date: 20080703
  Serious: Yes (Death)
  Sender: FDA-Public Use
  Company Number: FR-AVENTIS-200810331FR

PATIENT
  Age: 71 Year
  Sex: Male

DRUGS (5)
  1. LOVENOX [Suspect]
     Route: 058
     Dates: start: 20070826, end: 20070827
  2. ACTILYSE [Suspect]
     Indication: FIBRINOLYSIS
     Route: 042
     Dates: start: 20070825, end: 20070825
  3. NEXIUM [Suspect]
     Indication: PROPHYLAXIS AGAINST GASTROINTESTINAL ULCER
     Route: 042
     Dates: start: 20070825, end: 20070827
  4. LOXEN [Suspect]
     Dosage: DOSE QUANTITY: 2; DOSE UNIT: MILLIGRAM PER HOUR
     Route: 042
     Dates: start: 20070825, end: 20070826
  5. DIGOXIN [Suspect]
     Indication: ATRIAL FIBRILLATION
     Route: 048
     Dates: start: 20070825, end: 20070826

REACTIONS (1)
  - THROMBOCYTOPENIA [None]
